FAERS Safety Report 6916880-1 (Version None)
Quarter: 2010Q3

REPORT INFORMATION
  Report Type: 
  Country: None (occurrence: None)
  Receive Date: 20100809
  Receipt Date: 20100809
  Transmission Date: 20110219
  Serious: Yes (Hospitalization)
  Sender: FDA-Public Use
  Company Number: None

PATIENT
  Age: 46 Year
  Sex: Female
  Weight: 68.2 kg

DRUGS (4)
  1. ENBREL [Suspect]
     Dosage: ENBREL 50 MG WEEKLY SQ
     Route: 058
  2. ETODOLAC [Concomitant]
  3. PREMARIN [Concomitant]
  4. BENICAR HCT [Concomitant]

REACTIONS (1)
  - MALIGNANT MELANOMA [None]
